FAERS Safety Report 12315769 (Version 2)
Quarter: 2016Q2

REPORT INFORMATION
  Report Type: Spontaneous
  Country: US (occurrence: US)
  Receive Date: 20160428
  Receipt Date: 20160601
  Transmission Date: 20160815
  Serious: Yes (Other)
  Sender: FDA-Public Use
  Company Number: US-MDT-ADR-2016-00775

PATIENT
  Age: 57 Year
  Sex: Male

DRUGS (2)
  1. BACLOFEN. [Suspect]
     Active Substance: BACLOFEN
     Route: 037
  2. MORPHINE [Suspect]
     Active Substance: MORPHINE
     Route: 037

REACTIONS (4)
  - Infection [Recovered/Resolved]
  - Medical device site haemorrhage [Recovered/Resolved]
  - Medical device site swelling [Recovered/Resolved]
  - Patient-device incompatibility [Recovered/Resolved]
